FAERS Safety Report 7307911-8 (Version None)
Quarter: 2011Q1

REPORT INFORMATION
  Report Type: 
  Country: None (occurrence: None)
  Receive Date: 20110223
  Receipt Date: 20110216
  Transmission Date: 20110831
  Serious: Yes (Other)
  Sender: FDA-Public Use
  Company Number: US-AMGEN-USASP2011009465

PATIENT
  Sex: Female

DRUGS (2)
  1. ARANESP [Suspect]
     Dosage: 500 A?G, UNK
  2. ARANESP [Suspect]
     Indication: CHRONIC MYELOID LEUKAEMIA
     Dosage: 300 A?G, QMO
     Dates: start: 20100401

REACTIONS (2)
  - EYE DISORDER [None]
  - BLINDNESS [None]
